FAERS Safety Report 21968686 (Version 2)
Quarter: 2023Q1

REPORT INFORMATION
  Report Type: Spontaneous
  Country: PH (occurrence: None)
  Receive Date: 20230208
  Receipt Date: 20230210
  Transmission Date: 20230418
  Serious: Yes (Death, Hospitalization)
  Sender: FDA-Public Use
  Company Number: 2023A031144

PATIENT
  Age: 703 Month
  Sex: Male

DRUGS (1)
  1. IMFINZI [Suspect]
     Active Substance: DURVALUMAB
     Indication: Lung neoplasm malignant
     Route: 042
     Dates: start: 202203, end: 202212

REACTIONS (3)
  - Metastases to central nervous system [Fatal]
  - Metastases to spine [Fatal]
  - Seizure [Unknown]

NARRATIVE: CASE EVENT DATE: 20220701
